FAERS Safety Report 20266944 (Version 1)
Quarter: 2021Q4

REPORT INFORMATION
  Report Type: Spontaneous
  Country: US (occurrence: US)
  Receive Date: 20211231
  Receipt Date: 20211231
  Transmission Date: 20220303
  Serious: Yes (Death)
  Sender: FDA-Public Use
  Company Number: US-PFIZER INC-202101781231

PATIENT
  Age: 83 Year
  Sex: Male

DRUGS (1)
  1. BRAFTOVI [Suspect]
     Active Substance: ENCORAFENIB
     Dosage: 75 MG

REACTIONS (4)
  - Second primary malignancy [Fatal]
  - Pancreatic neoplasm [Fatal]
  - Gastric neoplasm [Fatal]
  - Illness [Unknown]
